FAERS Safety Report 9287865 (Version 2)
Quarter: 2013Q2

REPORT INFORMATION
  Report Type: Spontaneous
  Country: KR (occurrence: KR)
  Receive Date: 20130514
  Receipt Date: 20130522
  Transmission Date: 20140414
  Serious: Yes (Death)
  Sender: FDA-Public Use
  Company Number: KR-EISAI INC-E7389-03719-SPO-KR

PATIENT
  Sex: Female

DRUGS (5)
  1. HALAVEN [Suspect]
     Indication: BREAST CANCER
     Dosage: UNKNOWN
     Route: 041
     Dates: start: 20130318, end: 20130318
  2. HALAVEN [Suspect]
     Indication: METASTASES TO BONE
  3. HALAVEN [Suspect]
     Indication: METASTASES TO BONE
  4. HALAVEN [Suspect]
     Indication: METASTASES TO LIVER
  5. HALAVEN [Suspect]
     Indication: METASTASES TO LUNG

REACTIONS (2)
  - Dyspnoea [Fatal]
  - Malignant neoplasm progression [Fatal]
